FAERS Safety Report 6013653-1 (Version None)
Quarter: 2008Q4

REPORT INFORMATION
  Report Type: 
  Country: None (occurrence: None)
  Receive Date: 20081219
  Receipt Date: 20081216
  Transmission Date: 20090506
  Serious: Yes (Death)
  Sender: FDA-Public Use
  Company Number: US-BRISTOL-MYERS SQUIBB COMPANY-14444640

PATIENT
  Age: 59 Year
  Sex: Female

DRUGS (4)
  1. IXEMPRA KIT [Suspect]
     Indication: BREAST CANCER METASTATIC
     Dates: start: 20081103, end: 20081103
  2. METHADONE HCL [Concomitant]
  3. POTASSIUM CHLORIDE [Concomitant]
  4. WELLBUTRIN [Concomitant]

REACTIONS (1)
  - CARDIAC ARREST [None]
